FAERS Safety Report 4720399-6 (Version None)
Quarter: 2005Q3

REPORT INFORMATION
  Report Type: 
  Country: None (occurrence: None)
  Receive Date: 20050721
  Receipt Date: 20050713
  Transmission Date: 20060218
  Serious: Yes (Other)
  Sender: FDA-Public Use
  Company Number: PHBS2005BE10197

PATIENT
  Age: 63 Year
  Sex: Female

DRUGS (8)
  1. ZOMETA [Suspect]
     Indication: METASTASES TO BONE
     Dosage: 4 MG, QMO
     Route: 042
     Dates: start: 20021226, end: 20050601
  2. ARIMIDEX [Concomitant]
     Route: 065
     Dates: start: 20021226, end: 20030730
  3. NOLVADEX [Concomitant]
     Indication: TUMOUR MARKER INCREASED
     Dates: start: 20030730, end: 20040226
  4. CYCLOPHOSPHAMIDE + 5-FU + METHOTREXATE [Concomitant]
     Indication: DISEASE PROGRESSION
     Dosage: 6 CYCLES
     Route: 065
     Dates: start: 20030901, end: 20040201
  5. AROMASIN [Concomitant]
     Indication: TUMOUR MARKER INCREASED
     Route: 065
     Dates: start: 20040226
  6. ANTHRACYCLINES [Concomitant]
     Dosage: 3 CYCLES
     Route: 065
     Dates: start: 20030913
  7. TAXOTERE [Concomitant]
     Route: 065
     Dates: start: 20050101, end: 20050601
  8. FASLODEX [Concomitant]
     Route: 065
     Dates: start: 20050712

REACTIONS (8)
  - ASEPTIC NECROSIS BONE [None]
  - BONE DISORDER [None]
  - DISEASE PROGRESSION [None]
  - IMPAIRED HEALING [None]
  - METASTASES TO LIVER [None]
  - TOOTH DISORDER [None]
  - TOOTH EXTRACTION [None]
  - TUMOUR MARKER INCREASED [None]
